FAERS Safety Report 4738379-3 (Version None)
Quarter: 2005Q3

REPORT INFORMATION
  Report Type: 
  Country: None (occurrence: None)
  Receive Date: 20050809
  Receipt Date: 20050804
  Transmission Date: 20060218
  Serious: Yes (Other)
  Sender: FDA-Public Use
  Company Number: US-GLAXOSMITHKLINE-A0569020A

PATIENT
  Age: 60 Year
  Sex: Male

DRUGS (2)
  1. PAXIL [Suspect]
     Route: 048
  2. WELLBUTRIN [Suspect]

REACTIONS (1)
  - MURDER [None]
